FAERS Safety Report 15188300 (Version 4)
Quarter: 2019Q2

REPORT INFORMATION
  Report Type: Spontaneous
  Country: US (occurrence: US)
  Receive Date: 20180724
  Receipt Date: 20190606
  Transmission Date: 20190711
  Serious: Yes (Death, Other)
  Sender: FDA-Public Use
  Company Number: US-ASTRAZENECA-2018SE92200

PATIENT
  Age: 889 Month
  Sex: Female
  Weight: 72.6 kg

DRUGS (54)
  1. ISOSORBIDE. [Concomitant]
     Active Substance: ISOSORBIDE
  2. METHYLPHENIDATE HYDROCHLORIDE. [Concomitant]
     Active Substance: METHYLPHENIDATE HYDROCHLORIDE
  3. POTASSIUM CHLORIDE. [Concomitant]
     Active Substance: POTASSIUM CHLORIDE
  4. TOPIRAMATE. [Concomitant]
     Active Substance: TOPIRAMATE
  5. NIASPAN [Concomitant]
     Active Substance: NIACIN
  6. ESCITALOPRAM [Concomitant]
     Active Substance: ESCITALOPRAM OXALATE
  7. NEXIUM [Suspect]
     Active Substance: ESOMEPRAZOLE MAGNESIUM
     Route: 048
     Dates: start: 200902, end: 201101
  8. NOVOLOG [Concomitant]
     Active Substance: INSULIN ASPART
  9. HUMULIN NOS [Concomitant]
     Active Substance: INSULIN HUMAN
  10. LACTULOSE. [Concomitant]
     Active Substance: LACTULOSE
  11. ALPRAZOLAM. [Concomitant]
     Active Substance: ALPRAZOLAM
  12. LACTULOSE. [Concomitant]
     Active Substance: LACTULOSE
  13. NEXIUM [Suspect]
     Active Substance: ESOMEPRAZOLE MAGNESIUM
     Dosage: 40.0MG UNKNOWN
     Route: 048
     Dates: start: 20110307, end: 20160418
  14. FUROSEMIDE. [Concomitant]
     Active Substance: FUROSEMIDE
  15. LISINOPRIL. [Concomitant]
     Active Substance: LISINOPRIL
  16. CIPROFLOXACIN HYDROCHLORIDE. [Concomitant]
     Active Substance: CIPROFLOXACIN HYDROCHLORIDE
  17. HYDROCODONE ACETAMINOP [Concomitant]
  18. LYRICA [Concomitant]
     Active Substance: PREGABALIN
  19. TOPAMAX [Concomitant]
     Active Substance: TOPIRAMATE
  20. LUNESTA [Concomitant]
     Active Substance: ESZOPICLONE
  21. NYSTATIN. [Concomitant]
     Active Substance: NYSTATIN
  22. NEXIUM [Suspect]
     Active Substance: ESOMEPRAZOLE MAGNESIUM
     Route: 048
     Dates: start: 2009, end: 2016
  23. ZANTAC [Concomitant]
     Active Substance: RANITIDINE HYDROCHLORIDE
  24. ESCITALOPRAM [Concomitant]
     Active Substance: ESCITALOPRAM OXALATE
  25. NITROGLYCERIN. [Concomitant]
     Active Substance: NITROGLYCERIN
  26. METHYLPREDNISOLONE. [Concomitant]
     Active Substance: METHYLPREDNISOLONE
  27. METHOCARBAMOL. [Concomitant]
     Active Substance: METHOCARBAMOL
  28. CIPROFLOXACIN. [Concomitant]
     Active Substance: CIPROFLOXACIN
  29. BENZONATATE. [Concomitant]
     Active Substance: BENZONATATE
  30. PLAVIX [Concomitant]
     Active Substance: CLOPIDOGREL BISULFATE
  31. FUROSEMIDE. [Concomitant]
     Active Substance: FUROSEMIDE
  32. METHYLPHENIDATE. [Concomitant]
     Active Substance: METHYLPHENIDATE
  33. ROLAIDS [Concomitant]
     Active Substance: CALCIUM CARBONATE\MAGNESIUM HYDROXIDE
  34. CLOPIDOGREL [Concomitant]
     Active Substance: CLOPIDOGREL BISULFATE
  35. CIPROFLOXACIN. [Concomitant]
     Active Substance: CIPROFLOXACIN
  36. ALPRAZOLAM. [Concomitant]
     Active Substance: ALPRAZOLAM
  37. TEMAZEPAM. [Concomitant]
     Active Substance: TEMAZEPAM
  38. ATORVASTATIN [Concomitant]
     Active Substance: ATORVASTATIN
  39. LIPITOR [Concomitant]
     Active Substance: ATORVASTATIN CALCIUM
  40. METOPROLOL. [Concomitant]
     Active Substance: METOPROLOL
  41. RISPERIDONE. [Concomitant]
     Active Substance: RISPERIDONE
  42. PLAVIX [Concomitant]
     Active Substance: CLOPIDOGREL BISULFATE
  43. LODRANE D [Concomitant]
     Active Substance: BROMPHENIRAMINE MALEATE\PSEUDOEPHEDRINE HYDROCHLORIDE
  44. LIDODERM [Concomitant]
     Active Substance: LIDOCAINE
  45. METHOCARBAMOL. [Concomitant]
     Active Substance: METHOCARBAMOL
  46. NEXIUM [Suspect]
     Active Substance: ESOMEPRAZOLE MAGNESIUM
     Dosage: UNKNOWN
     Route: 048
     Dates: start: 201302, end: 201502
  47. NEXIUM [Suspect]
     Active Substance: ESOMEPRAZOLE MAGNESIUM
     Dosage: GENERIC UNKNOWN
     Route: 048
     Dates: start: 201510, end: 201601
  48. NEXIUM [Suspect]
     Active Substance: ESOMEPRAZOLE MAGNESIUM
     Dosage: GENERIC UNKNOWN
     Route: 048
     Dates: start: 201603
  49. CHOLECALCIFEROL [Concomitant]
     Active Substance: CHOLECALCIFEROL
  50. ASPIRIN. [Concomitant]
     Active Substance: ASPIRIN
  51. MONTELUKAST [Concomitant]
     Active Substance: MONTELUKAST SODIUM
  52. TOPIRAMATE. [Concomitant]
     Active Substance: TOPIRAMATE
  53. MELOXICAM. [Concomitant]
     Active Substance: MELOXICAM
  54. RITALIN [Concomitant]
     Active Substance: METHYLPHENIDATE HYDROCHLORIDE

REACTIONS (7)
  - Renal impairment [Unknown]
  - Renal injury [Unknown]
  - Acute kidney injury [Not Recovered/Not Resolved]
  - Death [Fatal]
  - Chronic kidney disease [Not Recovered/Not Resolved]
  - Renal failure [Unknown]
  - Nephrogenic anaemia [Not Recovered/Not Resolved]

NARRATIVE: CASE EVENT DATE: 201301
